FAERS Safety Report 18811947 (Version 6)
Quarter: 2021Q1

REPORT INFORMATION
  Report Type: Spontaneous
  Country: US (occurrence: US)
  Receive Date: 20210130
  Receipt Date: 20210318
  Transmission Date: 20210419
  Serious: Yes (Other)
  Sender: FDA-Public Use
  Company Number: US-UNITED THERAPEUTICS-UNT-2021-001516

PATIENT
  Age: 78 Year
  Sex: Male
  Weight: 53.97 kg

DRUGS (6)
  1. REMODULIN [Suspect]
     Active Substance: TREPROSTINIL
     Dosage: 0.013 ?G/KG, CONTINUING
     Route: 041
  2. SILDENAFIL CITRATE. [Concomitant]
     Active Substance: SILDENAFIL CITRATE
     Indication: PRODUCT USED FOR UNKNOWN INDICATION
     Dosage: UNK
     Route: 065
  3. REMODULIN [Suspect]
     Active Substance: TREPROSTINIL
     Dosage: 0.01 ?G/KG, CONTINUING
     Route: 041
     Dates: start: 202101
  4. REMODULIN [Suspect]
     Active Substance: TREPROSTINIL
     Dosage: 0.02 ?G/KG, CONTINUING
     Route: 041
  5. REMODULIN [Suspect]
     Active Substance: TREPROSTINIL
     Indication: PULMONARY ARTERIAL HYPERTENSION
     Dosage: UNK, CONTINUING
     Route: 041
     Dates: start: 20210115
  6. UPTRAVI [Concomitant]
     Active Substance: SELEXIPAG
     Indication: PRODUCT USED FOR UNKNOWN INDICATION
     Dosage: UNK
     Route: 065

REACTIONS (15)
  - Lung disorder [Unknown]
  - Swelling [Unknown]
  - Amnesia [Unknown]
  - Confusional state [Unknown]
  - Device use error [Recovered/Resolved]
  - Hallucination [Unknown]
  - Renal disorder [Unknown]
  - Oxygen saturation decreased [Unknown]
  - Delusion [Unknown]
  - Dyspnoea [Unknown]
  - Device connection issue [Recovered/Resolved]
  - Fatigue [Unknown]
  - Delirium [Unknown]
  - Depression [Recovering/Resolving]
  - Insomnia [Recovering/Resolving]

NARRATIVE: CASE EVENT DATE: 202101
